FAERS Safety Report 21904996 (Version 1)
Quarter: 2023Q1

REPORT INFORMATION
  Report Type: Spontaneous
  Country: FR (occurrence: FR)
  Receive Date: 20230124
  Receipt Date: 20230124
  Transmission Date: 20230418
  Serious: Yes (Death, Other)
  Sender: FDA-Public Use
  Company Number: FR-AMGEN-FRASP2023009794

PATIENT
  Age: 8 Year
  Sex: Male

DRUGS (12)
  1. CINACALCET HYDROCHLORIDE [Suspect]
     Active Substance: CINACALCET HYDROCHLORIDE
     Indication: Hyperparathyroidism secondary
     Dosage: 10 MILLIGRAM, QD
     Route: 065
     Dates: start: 2020
  2. CINACALCET HYDROCHLORIDE [Suspect]
     Active Substance: CINACALCET HYDROCHLORIDE
     Indication: End stage renal disease
  3. CALCIUM [Concomitant]
     Active Substance: CALCIUM
     Dosage: 500 MICROGRAM, QD
  4. ACETAMINOPHEN\CAFFEINE\PROPYPHENAZONE [Concomitant]
     Active Substance: ACETAMINOPHEN\CAFFEINE\PROPYPHENAZONE
     Dosage: 1 MICROGRAM, QD
  5. FOLIC ACID [Concomitant]
     Active Substance: FOLIC ACID
     Dosage: 5 MILLIGRAM, QD
  6. RENVELA [Concomitant]
     Active Substance: SEVELAMER CARBONATE
     Dosage: 800 MILLIGRAM, 3XDAY
  7. SODIUM BICARBONATE [Concomitant]
     Active Substance: SODIUM BICARBONATE
     Dosage: 2 GRAM X3/DAY
  8. AMLODIPINE [Concomitant]
     Active Substance: AMLODIPINE BESYLATE
     Dosage: 10 MILLIGRAM, QD
  9. CERTICAN [Concomitant]
     Active Substance: EVEROLIMUS
     Dosage: 1.75 MILLIGRAM
  10. PREDNISONE [Concomitant]
     Active Substance: PREDNISONE
     Dosage: 5 MILLIGRAM, QD
  11. VITAMIN C [Concomitant]
     Active Substance: ASCORBIC ACID
     Dosage: 300 MILLIGRAM X3/WEEK
  12. VITAMINS [Concomitant]
     Active Substance: VITAMINS
     Dosage: 1 AMP, QD

REACTIONS (3)
  - Death [Fatal]
  - Polyomavirus-associated nephropathy [Unknown]
  - Renal failure [Unknown]

NARRATIVE: CASE EVENT DATE: 20230113
